FAERS Safety Report 11323626 (Version 1)
Quarter: 2015Q3

REPORT INFORMATION
  Report Type: Report from Study
  Country: BE (occurrence: BE)
  Receive Date: 20150730
  Receipt Date: 20150730
  Transmission Date: 20151125
  Serious: Yes (Hospitalization)
  Sender: FDA-Public Use
  Company Number: BE-GLAXOSMITHKLINE-BE2015098707

PATIENT
  Age: 81 Year
  Sex: Male
  Weight: 71 kg

DRUGS (2)
  1. ELTROMBOPAG [Suspect]
     Active Substance: ELTROMBOPAG
     Indication: MYELODYSPLASTIC SYNDROME
     Dosage: 1D
     Route: 048
     Dates: start: 20141223
  2. ELTROMBOPAG [Suspect]
     Active Substance: ELTROMBOPAG
     Indication: THROMBOCYTOPENIA

REACTIONS (3)
  - Hypotension [Recovered/Resolved]
  - Pyrexia [Recovered/Resolved with Sequelae]
  - Malaise [Recovered/Resolved with Sequelae]

NARRATIVE: CASE EVENT DATE: 20150707
